FAERS Safety Report 18954430 (Version 1)
Quarter: 2021Q1

REPORT INFORMATION
  Report Type: Spontaneous
  Country: DE (occurrence: DE)
  Receive Date: 20210301
  Receipt Date: 20210301
  Transmission Date: 20210420
  Serious: Yes (Hospitalization)
  Sender: FDA-Public Use
  Company Number: DE-TEVA-2021-DE-1883910

PATIENT
  Age: 9 Month
  Sex: Male
  Weight: 8 kg

DRUGS (4)
  1. CIPROFLOXACIN 2MG/ML SAFT [Suspect]
     Active Substance: CIPROFLOXACIN
     Indication: PYELONEPHRITIS
     Dosage: N / A
     Route: 048
     Dates: start: 20200328, end: 20200329
  2. VIT. D (VIGANTOLETTEN) [Concomitant]
     Indication: PROPHYLAXIS
     Dosage: 500 IU
     Route: 048
  3. VIT. D (VIGANTOLETTEN) [Concomitant]
     Indication: RICKETS
  4. COTRIM [Suspect]
     Active Substance: SULFAMETHOXAZOLE\TRIMETHOPRIM
     Indication: PROPHYLAXIS URINARY TRACT INFECTION
     Dosage: 2 ML DAILY;
     Route: 048
     Dates: end: 20200328

REACTIONS (4)
  - Tubulointerstitial nephritis [Recovering/Resolving]
  - Pyelonephritis [Recovering/Resolving]
  - Infection [Recovering/Resolving]
  - Vomiting [Recovering/Resolving]

NARRATIVE: CASE EVENT DATE: 20200329
